FAERS Safety Report 7281095 (Version 4)
Quarter: 2013Q3

REPORT INFORMATION
  Report Type: Spontaneous
  Country: US (occurrence: US)
  Receive Date: 20100217
  Receipt Date: 20130816
  Transmission Date: 20140515
  Serious: Yes (Other)
  Sender: FDA-Public Use
  Company Number: US-ROCHE-657575

PATIENT
  Age: 18 Year
  Sex: Male
  Weight: 88.53 kg

DRUGS (1)
  1. ACCUTANE [Suspect]
     Indication: ACNE
     Route: 048

REACTIONS (10)
  - Crohn^s disease [Unknown]
  - Inflammatory bowel disease [Unknown]
  - Depression [Unknown]
  - Proctitis [Unknown]
  - Intestinal obstruction [Unknown]
  - Dry skin [Unknown]
  - Erythema [Unknown]
  - Nasal dryness [Unknown]
  - Dry mouth [Unknown]
  - Lip dry [Unknown]
